FAERS Safety Report 7433604-2 (Version None)
Quarter: 2011Q2

REPORT INFORMATION
  Report Type: 
  Country: None (occurrence: None)
  Receive Date: 20110422
  Receipt Date: 20110419
  Transmission Date: 20111010
  Serious: Yes (Other)
  Sender: FDA-Public Use
  Company Number: DE-ABBOTT-11P-062-0708889-00

PATIENT
  Sex: Female
  Weight: 91 kg

DRUGS (8)
  1. HUMIRA [Suspect]
     Indication: RHEUMATOID ARTHRITIS
     Route: 058
     Dates: start: 20101028, end: 20110121
  2. HUMIRA [Suspect]
     Route: 058
     Dates: start: 20110201
  3. ANALGETIC DRUG [Concomitant]
     Indication: RHEUMATOID ARTHRITIS
  4. PREDNISOLONE [Concomitant]
     Indication: RHEUMATOID ARTHRITIS
     Dosage: 10 MG DAILY
  5. BISOPROLOL [Concomitant]
     Indication: HYPERTENSION
     Dosage: 5 MG DAILY
  6. VITAMIN D [Concomitant]
     Indication: OSTEOPOROSIS
  7. SULFASALAZINE [Concomitant]
     Indication: RHEUMATOID ARTHRITIS
     Dosage: 3000 MG DAILY
  8. BONIVA [Concomitant]
     Indication: OSTEOPOROSIS
     Dosage: 3MG PER 3 MONTHS

REACTIONS (1)
  - PARANASAL CYST [None]
